FAERS Safety Report 6660533-4 (Version None)
Quarter: 2010Q1

REPORT INFORMATION
  Report Type: 
  Country: None (occurrence: None)
  Receive Date: 20100331
  Receipt Date: 20100326
  Transmission Date: 20100710
  Serious: Yes (Other)
  Sender: FDA-Public Use
  Company Number: PHEH2010US03334

PATIENT
  Sex: Female

DRUGS (11)
  1. RECLAST [Suspect]
     Dosage: UNK
     Dates: start: 20090226
  2. JANUVIA [Concomitant]
  3. PROZAC [Concomitant]
     Dosage: 30 MG, UNK
  4. PRILOSEC [Concomitant]
  5. MIRAPEX [Concomitant]
  6. KLONOPIN [Concomitant]
  7. ZANTAC [Concomitant]
  8. CRESTOR [Concomitant]
  9. CALCIUM CITRATE W/VITAMIN D NOS [Concomitant]
  10. OCUVITE                            /01053801/ [Concomitant]
  11. LOVAZA [Concomitant]

REACTIONS (1)
  - DIABETES MELLITUS [None]
